FAERS Safety Report 11013933 (Version 2)
Quarter: 2015Q2

REPORT INFORMATION
  Report Type: Spontaneous
  Country: US (occurrence: US)
  Receive Date: 20150412
  Receipt Date: 20150525
  Transmission Date: 20150821
  Serious: No
  Sender: FDA-Public Use
  Company Number: US-JNJFOC-20131111008

PATIENT
  Sex: Female

DRUGS (6)
  1. ELMIRON [Suspect]
     Active Substance: PENTOSAN POLYSULFATE SODIUM
     Indication: BLADDER DISORDER
     Route: 048
     Dates: start: 20131116, end: 20131116
  2. SIMCOR [Concomitant]
     Active Substance: NIACIN\SIMVASTATIN
     Indication: BLOOD CHOLESTEROL INCREASED
     Route: 065
  3. LOVAZA [Concomitant]
     Active Substance: OMEGA-3-ACID ETHYL ESTERS
     Indication: BLOOD CHOLESTEROL INCREASED
     Route: 065
  4. ELMIRON [Suspect]
     Active Substance: PENTOSAN POLYSULFATE SODIUM
     Indication: CYSTITIS
     Route: 048
     Dates: start: 20131116, end: 20131116
  5. COZAAR [Concomitant]
     Active Substance: LOSARTAN POTASSIUM
     Indication: HYPERTENSION
     Route: 065
  6. ELMIRON [Suspect]
     Active Substance: PENTOSAN POLYSULFATE SODIUM
     Indication: BLADDER IRRITATION
     Route: 048
     Dates: start: 20131116, end: 20131116

REACTIONS (7)
  - Swelling [Unknown]
  - Fatigue [Unknown]
  - Dizziness [Unknown]
  - Pruritus [Unknown]
  - Product use issue [Unknown]
  - Rash [Unknown]
  - Heart rate increased [Unknown]

NARRATIVE: CASE EVENT DATE: 20131116
